FAERS Safety Report 14727719 (Version 1)
Quarter: 2018Q2

REPORT INFORMATION
  Report Type: Spontaneous
  Country: DK (occurrence: DK)
  Receive Date: 20180406
  Receipt Date: 20180406
  Transmission Date: 20180711
  Serious: Yes (Hospitalization)
  Sender: FDA-Public Use
  Company Number: DK-009507513-1804DNK001884

PATIENT
  Age: 73 Year
  Sex: Female

DRUGS (13)
  1. JANUMET [Suspect]
     Active Substance: METFORMIN HYDROCHLORIDE\SITAGLIPTIN PHOSPHATE
     Indication: DIABETES MELLITUS
     Dosage: STRENGTH: 850+50 MG
     Route: 048
     Dates: start: 20160512
  2. IMDUR [Concomitant]
     Active Substance: ISOSORBIDE MONONITRATE
     Indication: ANGINA PECTORIS
     Dosage: STRENGTH: 60 MG.
     Route: 048
     Dates: start: 20150416
  3. CLOPIDOGREL [Suspect]
     Active Substance: CLOPIDOGREL BISULFATE
     Indication: THROMBOSIS PROPHYLAXIS
     Dosage: STRENGTH: 75 MG.
     Route: 048
     Dates: start: 20161017
  4. FOLIMET [Concomitant]
     Indication: FOLATE DEFICIENCY
     Dosage: STRENGTH: 5 MG.
     Route: 048
     Dates: start: 20171120
  5. METOPROLOL TARTRATE. [Concomitant]
     Active Substance: METOPROLOL TARTRATE
     Indication: HYPERTENSION
     Dosage: DOSE: TWO (2) TABLETS MORNING, 1 TABLET EVENING. STRENGTH: 50 MG.
     Route: 048
     Dates: start: 20171004
  6. SPIOLTO RESPIMAT [Concomitant]
     Active Substance: OLODATEROL HYDROCHLORIDE\TIOTROPIUM BROMIDE MONOHYDRATE
     Indication: CHRONIC OBSTRUCTIVE PULMONARY DISEASE
     Dosage: STRENGTH: 2.5+2.5 (MICROGRAMS) MCG.
     Route: 055
     Dates: start: 20171106
  7. UNIKALK BASIC [Concomitant]
     Indication: VITAMIN SUPPLEMENTATION
     Dosage: STRENGTH 400 MG.
     Route: 048
     Dates: start: 20180202
  8. ENALAPRIL KRKA [Concomitant]
     Active Substance: ENALAPRIL MALEATE
     Indication: HYPERTENSION
     Dosage: STRENGTH: 20 MG.
     Route: 048
     Dates: start: 20171006
  9. BUVENTOL EASYHALER [Concomitant]
     Active Substance: ALBUTEROL SULFATE
     Indication: DYSPNOEA
     Dosage: DOSE: ONE (1) PUFF AS NECESSARY, UP TO FOUR (4) TIMES A DAY. STRENGTH: 200 MCG/DOSE; AS NECESSARY
     Route: 055
     Dates: start: 20171106
  10. KALEORID [Concomitant]
     Active Substance: POTASSIUM CHLORIDE
     Indication: MINERAL SUPPLEMENTATION
     Dosage: STRENGTH: 750 MG.
     Route: 048
     Dates: start: 20150310
  11. ALLOPURINOL. [Concomitant]
     Active Substance: ALLOPURINOL
     Indication: GOUTY ARTHRITIS
     Dosage: STRENGTH: 100 MG.
     Route: 048
     Dates: start: 20171103
  12. VIBEDEN [Concomitant]
     Indication: VITAMIN B12 DEFICIENCY
     Dosage: STRENGTH: 1 MG/ML
     Route: 030
     Dates: start: 20171107
  13. SIMVASTATIN ACTAVIS [Concomitant]
     Active Substance: SIMVASTATIN
     Indication: HYPERCHOLESTEROLAEMIA
     Dosage: STRENGTH: 40 MG.
     Route: 048
     Dates: start: 20120921

REACTIONS (2)
  - Dyspnoea [Recovering/Resolving]
  - Chest discomfort [Recovering/Resolving]

NARRATIVE: CASE EVENT DATE: 20180308
